FAERS Safety Report 17062189 (Version 4)
Quarter: 2020Q2

REPORT INFORMATION
  Report Type: Spontaneous
  Country: JP (occurrence: JP)
  Receive Date: 20191122
  Receipt Date: 20200401
  Transmission Date: 20200713
  Serious: Yes (Life-Threatening, Hospitalization, Other)
  Sender: FDA-Public Use
  Company Number: JP-ROCHE-2474318

PATIENT
  Age: 68 Year
  Sex: Male
  Weight: 68 kg

DRUGS (9)
  1. ALOXI [Concomitant]
     Active Substance: PALONOSETRON HYDROCHLORIDE
     Dosage: DOSAGE IS UNCERTAIN.
     Route: 042
     Dates: start: 20190529, end: 20190529
  2. ELIQUIS [Concomitant]
     Active Substance: APIXABAN
     Dosage: DOSAGE IS UNCERTAIN.
     Route: 048
     Dates: start: 20180126, end: 20191031
  3. AVASTIN [Suspect]
     Active Substance: BEVACIZUMAB
     Indication: RECTAL CANCER
     Route: 041
     Dates: start: 20190529, end: 20190529
  4. TS-1 [Suspect]
     Active Substance: GIMERACIL\OTERACIL\TEGAFUR
     Indication: RECTAL CANCER
     Route: 048
     Dates: start: 20190529, end: 20190608
  5. DEXART [Concomitant]
     Active Substance: DEXAMETHASONE SODIUM PHOSPHATE
     Dosage: DOSAGE IS UNCERTAIN.
     Route: 065
     Dates: start: 20190529, end: 20190529
  6. POLAPREZINC [Concomitant]
     Active Substance: POLAPREZINC
     Dosage: DOSAGE IS UNCERTAIN.
     Route: 048
  7. TOPOTECIN [Suspect]
     Active Substance: IRINOTECAN HYDROCHLORIDE
     Indication: RECTAL CANCER
     Route: 041
     Dates: start: 20190529, end: 20190529
  8. URSODEOXYCHOLIC ACID [Concomitant]
     Active Substance: URSODIOL
     Dosage: DOSAGE IS UNCERTAIN.
     Route: 048
     Dates: start: 20180119, end: 20190624
  9. MINOCYCLINE HYDROCHLORIDE. [Concomitant]
     Active Substance: MINOCYCLINE HYDROCHLORIDE
     Dosage: DOSAGE IS UNCERTAIN.
     Route: 048
     Dates: start: 20180119, end: 20190619

REACTIONS (9)
  - Renal disorder [Recovering/Resolving]
  - Haematoma muscle [Unknown]
  - Pancytopenia [Recovering/Resolving]
  - Febrile neutropenia [Recovering/Resolving]
  - Pulmonary congestion [Unknown]
  - Stomatitis [Unknown]
  - Device related sepsis [Unknown]
  - Septic shock [Unknown]
  - Decreased appetite [Recovering/Resolving]

NARRATIVE: CASE EVENT DATE: 20190608
